FAERS Safety Report 8273554-5 (Version None)
Quarter: 2012Q2

REPORT INFORMATION
  Report Type: 
  Country: None (occurrence: None)
  Receive Date: 20120411
  Receipt Date: 20120109
  Transmission Date: 20120825
  Serious: No
  Sender: FDA-Public Use
  Company Number: US-TEVA-316665USA

PATIENT
  Sex: Female
  Weight: 65.83 kg

DRUGS (12)
  1. ERGOCALCIFEROL [Concomitant]
  2. VITIS VINIFERA EXTRACT [Concomitant]
     Dates: end: 20120105
  3. FLORADIX KRAUTERBLUT [Concomitant]
     Indication: MINERAL SUPPLEMENTATION
  4. NICOTINAM. W/PYRIDOXI. HCL/RIBOFL./THIAM. HCL [Concomitant]
  5. LAMOTRGINE [Concomitant]
  6. ASCORBIC ACID [Concomitant]
  7. FISH OIL [Concomitant]
  8. QUETIAPINE [Concomitant]
  9. BUPROPION HCL [Concomitant]
  10. LAMOTRGINE [Concomitant]
  11. NUVIGIL [Suspect]
     Indication: SOMNOLENCE
     Route: 048
     Dates: start: 20111223
  12. OIL OF OREGANO [Concomitant]
     Indication: HYPERSENSITIVITY

REACTIONS (3)
  - ULCER [None]
  - BURNING SENSATION [None]
  - DRUG EFFECT DELAYED [None]
